FAERS Safety Report 12981994 (Version 1)
Quarter: 2016Q4

REPORT INFORMATION
  Report Type: Spontaneous
  Country: BR (occurrence: BR)
  Receive Date: 20161129
  Receipt Date: 20161129
  Transmission Date: 20170207
  Serious: Yes (Life-Threatening, Hospitalization, Other)
  Sender: FDA-Public Use
  Company Number: BR-TORRENT-00003705

PATIENT
  Age: 29 Year
  Sex: Male
  Weight: 80 kg

DRUGS (4)
  1. LAMITOR [Suspect]
     Active Substance: LAMOTRIGINE
     Indication: SOMNOLENCE
     Dosage: ONCE DAILY/ ORAL
     Route: 048
     Dates: start: 201609, end: 20161014
  2. RISPERIDONE. [Concomitant]
     Active Substance: RISPERIDONE
     Indication: SCHIZOPHRENIA
     Dosage: NUMBER OF UNITS IN INTERVAL IS UNKNOWN/ ORAL
     Route: 048
  3. AKINETON [Concomitant]
     Active Substance: BIPERIDEN HYDROCHLORIDE
     Indication: DETOXIFICATION
     Dosage: DOSE NUMBER IS UNKNOWN/ ORAL
     Route: 048
  4. DEPAKENE [Concomitant]
     Active Substance: VALPROIC ACID
     Indication: PRODUCT USED FOR UNKNOWN INDICATION
     Dosage: ONE TABLET DAILY/ ORAL
     Route: 048

REACTIONS (7)
  - Renal failure [Not Recovered/Not Resolved]
  - Off label use [Recovered/Resolved]
  - Platelet count decreased [Not Recovered/Not Resolved]
  - Stevens-Johnson syndrome [Not Recovered/Not Resolved]
  - Hypotension [Not Recovered/Not Resolved]
  - Toxic epidermal necrolysis [Not Recovered/Not Resolved]
  - Bacterial infection [Not Recovered/Not Resolved]

NARRATIVE: CASE EVENT DATE: 201609
